FAERS Safety Report 12984460 (Version 1)
Quarter: 2016Q4

REPORT INFORMATION
  Report Type: Spontaneous
  Country: US (occurrence: US)
  Receive Date: 20161129
  Receipt Date: 20161129
  Transmission Date: 20170207
  Serious: No
  Sender: FDA-Public Use
  Company Number: US-009507513-1611USA013544

PATIENT
  Sex: Male

DRUGS (1)
  1. ASMANEX [Suspect]
     Active Substance: MOMETASONE FUROATE
     Dosage: 2 PUFFS, TWICE DAILY; ROUTE: INHALER
     Route: 055

REACTIONS (3)
  - Product use issue [Unknown]
  - No adverse event [Unknown]
  - Drug dose omission [Unknown]
